FAERS Safety Report 25725558 (Version 2)
Quarter: 2025Q4

REPORT INFORMATION
  Report Type: Spontaneous
  Country: US (occurrence: US)
  Receive Date: 20250826
  Receipt Date: 20251225
  Transmission Date: 20260118
  Serious: No
  Sender: UROGEN PHARMA
  Company Number: US-UROGEN PHARMA LTD.-2025-UGN-000124

PATIENT

DRUGS (7)
  1. JELMYTO [Suspect]
     Active Substance: MITOMYCIN
     Indication: Transitional cell cancer of the renal pelvis and ureter
     Dosage: 7 MILLILITER, INSTILLATION
     Dates: start: 20250613, end: 20250613
  2. JELMYTO [Suspect]
     Active Substance: MITOMYCIN
     Dosage: 7 MILLILITER, INSTILLATION
     Dates: start: 20250620, end: 20250620
  3. JELMYTO [Suspect]
     Active Substance: MITOMYCIN
     Dosage: 7 MILLILITER, INSTILLATION
     Dates: start: 20250627, end: 20250627
  4. JELMYTO [Suspect]
     Active Substance: MITOMYCIN
     Dosage: 7 MILLILITER, INSTILLATION
     Dates: start: 20250627, end: 20250627
  5. JELMYTO [Suspect]
     Active Substance: MITOMYCIN
     Dosage: 7 MILLILITER, INSTILLATION
     Dates: start: 2025, end: 2025
  6. JELMYTO [Suspect]
     Active Substance: MITOMYCIN
     Dosage: 7 MILLILITER, INSTILLATION
     Dates: start: 2025, end: 2025
  7. JELMYTO [Suspect]
     Active Substance: MITOMYCIN
     Dosage: 7 MILLILITER, INSTILLATION (MAINTENANCE)
     Dates: start: 20251022, end: 20251022

REACTIONS (2)
  - Urinary tract infection [Recovered/Resolved]
  - Urinary tract infection [Unknown]

NARRATIVE: CASE EVENT DATE: 20250701
